FAERS Safety Report 7680274-4 (Version None)
Quarter: 2011Q3

REPORT INFORMATION
  Report Type: 
  Country: None (occurrence: None)
  Receive Date: 20110812
  Receipt Date: 20110808
  Transmission Date: 20111222
  Serious: Yes (Disabling)
  Sender: FDA-Public Use
  Company Number: GB-ROCHE-796124

PATIENT
  Age: 69 Year
  Sex: Male
  Weight: 14 kg

DRUGS (6)
  1. SIMVASTATIN [Concomitant]
     Route: 048
  2. BENDROFLUMETHIAZIDE [Concomitant]
     Route: 048
  3. CLOPIDOGREL [Concomitant]
     Route: 048
  4. DOXAZOSIN MESYLATE [Concomitant]
     Route: 048
  5. NAPROXEN [Suspect]
     Indication: ARTHRITIS
     Route: 048
     Dates: start: 20110722, end: 20110723
  6. LOSARTAN POTASSIUM [Concomitant]
     Route: 048

REACTIONS (1)
  - SWOLLEN TONGUE [None]
